FAERS Safety Report 7592319-0 (Version None)
Quarter: 2011Q3

REPORT INFORMATION
  Report Type: 
  Country: None (occurrence: None)
  Receive Date: 20110706
  Receipt Date: 20110623
  Transmission Date: 20111222
  Serious: Yes (Other)
  Sender: FDA-Public Use
  Company Number: US-JNJFOC-20110611422

PATIENT
  Age: 38 Year
  Sex: Female

DRUGS (2)
  1. REMICADE [Suspect]
     Indication: CROHN'S DISEASE
     Route: 042
     Dates: start: 20101201, end: 20110601
  2. REMICADE [Suspect]
     Route: 042
     Dates: start: 20110601

REACTIONS (2)
  - INFUSION SITE EXTRAVASATION [None]
  - CENTRAL VENOUS CATHETERISATION [None]
